FAERS Safety Report 8275825-5 (Version None)
Quarter: 2012Q2

REPORT INFORMATION
  Report Type: 
  Country: None (occurrence: None)
  Receive Date: 20120410
  Receipt Date: 20120410
  Transmission Date: 20120825
  Serious: Yes (Life-Threatening, Hospitalization)
  Sender: FDA-Public Use
  Company Number: None

PATIENT
  Age: 50 Year
  Sex: Male
  Weight: 75.1 kg

DRUGS (1)
  1. PACLITAXEL [Suspect]
     Indication: NEOPLASM MALIGNANT
     Dosage: 100 MG IV
     Route: 042
     Dates: start: 20110712, end: 20110712

REACTIONS (5)
  - TACHYPNOEA [None]
  - HYPERTENSION [None]
  - RESPIRATORY DEPRESSION [None]
  - ANAPHYLACTIC REACTION [None]
  - TACHYCARDIA [None]
